FAERS Safety Report 5045824-5 (Version None)
Quarter: 2006Q3

REPORT INFORMATION
  Report Type: 
  Country: None (occurrence: None)
  Receive Date: 20060710
  Receipt Date: 20010626
  Transmission Date: 20061208
  Serious: Yes (Hospitalization, Other)
  Sender: FDA-Public Use
  Company Number: DE-BRISTOL-MYERS SQUIBB COMPANY-13433214

PATIENT
  Age: 62 Year
  Sex: Female
  Weight: 58 kg

DRUGS (32)
  1. TAXOL [Suspect]
     Indication: OVARIAN CANCER
     Route: 042
     Dates: start: 19990714, end: 19991110
  2. CISPLATIN [Suspect]
     Indication: OVARIAN CANCER
     Dates: start: 19990714, end: 19991110
  3. ETHYOL [Suspect]
     Indication: OVARIAN CANCER
     Dates: start: 19990714, end: 19991110
  4. TAMOXIFEN [Suspect]
     Dates: start: 20000301
  5. TAMOXIFEN [Suspect]
     Dates: start: 20000329, end: 20000524
  6. MEDROXYPROGESTERONE ACETATE [Suspect]
     Indication: OVARIAN CANCER
     Dates: start: 20000324
  7. TREOSULFAN [Suspect]
     Indication: OVARIAN CANCER
     Dates: start: 20000809
  8. METOCLOPRAMIDE [Concomitant]
     Indication: GASTROINTESTINAL DISORDER
     Dates: start: 19990701
  9. FORTECORTIN [Concomitant]
     Dates: start: 19990701
  10. LACTULOSE [Concomitant]
     Indication: CONSTIPATION
     Dates: start: 19990701
  11. VITAMIN B COMPLEX CAP [Concomitant]
     Indication: HYPOAESTHESIA
     Dates: start: 20000101
  12. RANITIDINE [Concomitant]
     Dates: start: 20000201
  13. METOCLOPRAMIDE [Concomitant]
     Indication: GASTROINTESTINAL PAIN
     Dates: start: 20000601, end: 20001101
  14. METOCLOPRAMIDE [Concomitant]
     Indication: NAUSEA
     Dates: start: 20000601, end: 20001101
  15. AMPHO-MORONAL [Concomitant]
     Indication: PROPHYLAXIS
     Dates: start: 20000901
  16. OMEPRAZOLE [Concomitant]
     Indication: DYSPEPSIA
     Dates: start: 20000920
  17. OMEPRAZOLE [Concomitant]
     Dates: start: 20000920
  18. SPIRONOLACTONE [Concomitant]
     Indication: ASCITES
     Dates: start: 20000901, end: 20001004
  19. KALINOR [Concomitant]
     Dates: start: 20001129
  20. PREDNISONE TAB [Concomitant]
     Indication: ANOREXIA
     Dates: start: 20001011
  21. PANTOPRAZOLE [Concomitant]
     Indication: DYSPEPSIA
     Dates: start: 20001011
  22. LACTULOSE [Concomitant]
     Dates: start: 20001001
  23. DULCOLAX [Concomitant]
     Indication: CONSTIPATION
     Dates: start: 20001001
  24. LOPERAMIDE [Concomitant]
     Indication: DIARRHOEA
     Dates: start: 20001024
  25. FUROSEMIDE [Concomitant]
     Indication: BLOOD UREA INCREASED
     Dates: start: 20001025
  26. GRANOCYTE [Concomitant]
     Indication: LEUKOPENIA
     Dates: start: 20001030
  27. AMOXICILLIN [Concomitant]
     Dates: start: 20001103
  28. CIPROFLOXACIN [Concomitant]
     Dates: start: 20001103
  29. FUROSEMIDE [Concomitant]
     Indication: OEDEMA PERIPHERAL
     Dates: start: 20001113
  30. ALBUMIN 20% [Concomitant]
     Indication: PROTEIN TOTAL
     Dates: start: 20001219
  31. SALINE [Concomitant]
     Indication: FLUID REPLACEMENT
     Dates: start: 20001219
  32. CALCIUM GLUCONATE [Concomitant]
     Indication: BLOOD CALCIUM
     Dates: start: 20001219

REACTIONS (51)
  - ABDOMINAL PAIN UPPER [None]
  - ALOPECIA [None]
  - ANAEMIA [None]
  - ANOREXIA [None]
  - ASCITES [None]
  - ASTHENIA [None]
  - AZOTAEMIA [None]
  - BLOOD CALCIUM DECREASED [None]
  - BLOOD CHLORIDE DECREASED [None]
  - BLOOD CREATININE INCREASED [None]
  - BLOOD SODIUM DECREASED [None]
  - BOWEL SOUNDS ABNORMAL [None]
  - CATHETER PLACEMENT [None]
  - CHEST PAIN [None]
  - CONSTIPATION [None]
  - DIARRHOEA [None]
  - DRUG INTOLERANCE [None]
  - DYSPEPSIA [None]
  - ELECTROCARDIOGRAM ST SEGMENT DEPRESSION [None]
  - ERUCTATION [None]
  - FATIGUE [None]
  - FEELING HOT [None]
  - GASTROINTESTINAL MOTILITY DISORDER [None]
  - GASTROINTESTINAL PAIN [None]
  - HAEMOGLOBIN DECREASED [None]
  - HOSPITALISATION [None]
  - HYPOAESTHESIA [None]
  - HYPOKALAEMIA [None]
  - LEUKOPENIA [None]
  - MALAISE [None]
  - MALIGNANT NEOPLASM PROGRESSION [None]
  - MALNUTRITION [None]
  - MUSCLE FATIGUE [None]
  - MUSCULAR WEAKNESS [None]
  - NASOPHARYNGITIS [None]
  - NAUSEA [None]
  - NEOPLASM [None]
  - OEDEMA PERIPHERAL [None]
  - OLIGURIA [None]
  - PAIN IN EXTREMITY [None]
  - PARAESTHESIA [None]
  - PERFORMANCE STATUS DECREASED [None]
  - PERITONEAL CARCINOMA [None]
  - PROTEIN TOTAL DECREASED [None]
  - RHINITIS [None]
  - SNEEZING [None]
  - TACHYARRHYTHMIA [None]
  - THROMBOCYTOPENIA [None]
  - VOMITING [None]
  - WEIGHT DECREASED [None]
  - WHITE BLOOD CELL COUNT DECREASED [None]
